FAERS Safety Report 4286872-2 (Version None)
Quarter: 2004Q1

REPORT INFORMATION
  Report Type: 
  Country: None (occurrence: None)
  Receive Date: 20040202
  Receipt Date: 20040116
  Transmission Date: 20041129
  Serious: Yes (Hospitalization)
  Sender: FDA-Public Use
  Company Number: 601065

PATIENT
  Age: 63 Year
  Sex: Female
  Weight: 68.9467 kg

DRUGS (1)
  1. GAMMAGARD S/D [Suspect]
     Indication: NEUROPATHY PERIPHERAL
     Dosage: 55 GM; TIW; INTRAVENOUS
     Route: 042
     Dates: start: 20040102, end: 20040104

REACTIONS (1)
  - CEREBROVASCULAR ACCIDENT [None]
